FAERS Safety Report 9038448 (Version 1)
Quarter: 2013Q1

REPORT INFORMATION
  Report Type: Spontaneous
  Country: CA (occurrence: CA)
  Receive Date: 20130129
  Receipt Date: 20130129
  Transmission Date: 20140127
  Serious: Yes (Other)
  Sender: FDA-Public Use
  Company Number: CA-ROCHE-1181513

PATIENT
  Age: 59 Year
  Sex: Male

DRUGS (9)
  1. PEGASYS [Suspect]
     Indication: PRODUCT USED FOR UNKNOWN INDICATION
     Dosage: DOSE HELD
     Route: 065
     Dates: start: 20121010
  2. PEGASYS [Suspect]
     Dosage: RESTARTED AT LOWER DOSE
     Route: 065
     Dates: start: 20121210
  3. PEGASYS [Suspect]
     Dosage: INCREASED DOSE
     Route: 065
     Dates: start: 20121224
  4. PEGASYS [Suspect]
     Route: 065
  5. COPEGUS [Suspect]
     Indication: PRODUCT USED FOR UNKNOWN INDICATION
     Route: 065
     Dates: start: 20121010
  6. INCIVEK [Suspect]
     Indication: PRODUCT USED FOR UNKNOWN INDICATION
     Route: 065
     Dates: start: 20121010
  7. CITALOPRAM [Concomitant]
  8. IMOVANE [Concomitant]
     Dosage: HS (AT NIGHT)
     Route: 065
  9. TYLENOL EXTRA STRENGTH [Concomitant]
     Route: 065

REACTIONS (2)
  - Neutropenia [Not Recovered/Not Resolved]
  - White blood cell count decreased [Not Recovered/Not Resolved]
